FAERS Safety Report 8020137-8 (Version None)
Quarter: 2012Q1

REPORT INFORMATION
  Report Type: 
  Country: None (occurrence: None)
  Receive Date: 20120103
  Receipt Date: 20111226
  Transmission Date: 20120608
  Serious: Yes (Hospitalization)
  Sender: FDA-Public Use
  Company Number: FR-TEVA-315514ISR

PATIENT
  Age: 36 Year
  Sex: Female

DRUGS (5)
  1. VALPROATE SODIUM [Interacting]
     Dosage: 1000 MILLIGRAM;
  2. DIAZEPAM [Suspect]
     Indication: AGITATION
     Dosage: 30 MILLIGRAM;
  3. VALPROATE SODIUM [Interacting]
     Dosage: 1500 MILLIGRAM;
  4. OLANZAPINE [Interacting]
     Dosage: 10 MILLIGRAM;
  5. OLANZAPINE [Interacting]
     Dosage: 20 MILLIGRAM;

REACTIONS (2)
  - DRUG INTERACTION [None]
  - ENCEPHALOPATHY [None]
